FAERS Safety Report 9787108 (Version 2)
Quarter: 2014Q1

REPORT INFORMATION
  Report Type: Report from Study
  Country: JP (occurrence: JP)
  Receive Date: 20131228
  Receipt Date: 20140312
  Transmission Date: 20141002
  Serious: Yes (Hospitalization)
  Sender: FDA-Public Use
  Company Number: JP-ROCHE-1323480

PATIENT
  Age: 84 Year
  Sex: Male
  Weight: 57 kg

DRUGS (3)
  1. METHOXY POLYETHYLENE GLYCOL-EPOETIN BETA [Suspect]
     Indication: NEPHROGENIC ANAEMIA
     Route: 042
     Dates: start: 20120329
  2. MICARDIS [Concomitant]
     Route: 048
     Dates: end: 20130625
  3. CONIEL [Concomitant]
     Route: 048
     Dates: end: 20130827

REACTIONS (1)
  - Hepatocellular carcinoma [Recovering/Resolving]
